FAERS Safety Report 10953584 (Version 2)
Quarter: 2015Q2

REPORT INFORMATION
  Report Type: Spontaneous
  Country: US (occurrence: US)
  Receive Date: 20150325
  Receipt Date: 20150610
  Transmission Date: 20150821
  Serious: Yes (Hospitalization, Other)
  Sender: FDA-Public Use
  Company Number: US-PFIZER INC-2015098457

PATIENT
  Age: 18 Year
  Sex: Female
  Weight: 66 kg

DRUGS (14)
  1. DILANTIN [Suspect]
     Active Substance: PHENYTOIN
     Indication: SEIZURE
     Dosage: 300 MG, DAILY
  2. DILANTIN [Interacting]
     Active Substance: PHENYTOIN
     Dosage: UP TO 500 MG DAILY
  3. PHENOBARBITAL. [Interacting]
     Active Substance: PHENOBARBITAL
     Indication: SEIZURE
     Dosage: 90 MG, DAILY
  4. PHENOBARBITAL. [Interacting]
     Active Substance: PHENOBARBITAL
     Dosage: 300 MG OR MORE OF PHENOBARBITAL PER DAY
  5. MYSOLINE [Concomitant]
     Active Substance: PRIMIDONE
     Dosage: 500 MG, DAILY
  6. DILANTIN [Interacting]
     Active Substance: PHENYTOIN
     Dosage: GIVEN AS MUCH AS 900 TO 1000 MG PER DAY
  7. DILANTIN [Interacting]
     Active Substance: PHENYTOIN
     Dosage: UP TO 1 GM A DAY
  8. PARALDEHYDE [Concomitant]
     Active Substance: PARALDEHYDE
     Dosage: UNK
  9. DILANTIN [Interacting]
     Active Substance: PHENYTOIN
     Dosage: 300 MG, DAILY
  10. PHENOBARBITAL. [Interacting]
     Active Substance: PHENOBARBITAL
     Dosage: 900 MG, DAILY
  11. PHENOBARBITAL. [Interacting]
     Active Substance: PHENOBARBITAL
     Dosage: 90 MG, DAILY
  12. LIBRIUM [Concomitant]
     Active Substance: CHLORDIAZEPOXIDE HYDROCHLORIDE
     Indication: SEIZURE
     Dosage: 20 MG, DAILY
  13. LIBRIUM [Concomitant]
     Active Substance: CHLORDIAZEPOXIDE HYDROCHLORIDE
     Dosage: DOSE INCREASED
  14. LIBRIUM [Concomitant]
     Active Substance: CHLORDIAZEPOXIDE HYDROCHLORIDE
     Dosage: 30 MG, DAILY

REACTIONS (11)
  - Toxicity to various agents [Unknown]
  - Nervous system disorder [Not Recovered/Not Resolved]
  - Dysarthria [Unknown]
  - Disorientation [Unknown]
  - Nystagmus [Not Recovered/Not Resolved]
  - Drug ineffective [Unknown]
  - Overdose [Unknown]
  - Ataxia [Not Recovered/Not Resolved]
  - Drug interaction [Unknown]
  - Stupor [Unknown]
  - Anticonvulsant drug level above therapeutic [Unknown]
